FAERS Safety Report 4559422-0 (Version None)
Quarter: 2005Q1

REPORT INFORMATION
  Report Type: 
  Country: None (occurrence: None)
  Receive Date: 20050119
  Receipt Date: 20050105
  Transmission Date: 20050727
  Serious: No
  Sender: FDA-Public Use
  Company Number: 2005AP00090

PATIENT
  Sex: Female

DRUGS (3)
  1. IRESSA [Suspect]
     Indication: LUNG NEOPLASM MALIGNANT
     Dates: start: 20030101
  2. NO MATCH [Concomitant]
  3. RADIOTHERAPY [Concomitant]

REACTIONS (3)
  - CARDIAC DISORDER [None]
  - HEPATOCELLULAR DAMAGE [None]
  - RENAL DISORDER [None]
